FAERS Safety Report 7038184-1 (Version None)
Quarter: 2010Q4

REPORT INFORMATION
  Report Type: 
  Country: None (occurrence: None)
  Receive Date: 20101011
  Receipt Date: 20100928
  Transmission Date: 20110411
  Serious: Yes (Hospitalization)
  Sender: FDA-Public Use
  Company Number: TH-WATSON-2010-13135

PATIENT
  Age: 47 Year
  Sex: Female

DRUGS (1)
  1. DEFEROXAMINE MESYLATE (WATSON LABORATORIES) [Suspect]
     Indication: IRON OVERLOAD
     Dosage: 1500 MG, 2/WEEK
     Route: 042
     Dates: start: 20080501

REACTIONS (3)
  - AEROMONA INFECTION [None]
  - RHABDOMYOLYSIS [None]
  - SEPTIC EMBOLUS [None]
